FAERS Safety Report 21160951 (Version 1)
Quarter: 2022Q3

REPORT INFORMATION
  Report Type: Spontaneous
  Country: US (occurrence: None)
  Receive Date: 20220801
  Receipt Date: 20220801
  Transmission Date: 20221026
  Serious: No
  Sender: FDA-Public Use
  Company Number: None

PATIENT
  Age: 42 Year
  Sex: Female
  Weight: 61.65 kg

DRUGS (5)
  1. TEMOZOLOMIDE [Suspect]
     Active Substance: TEMOZOLOMIDE
     Indication: Brain neoplasm malignant
     Dosage: FREQUENCY : DAILY;?
     Route: 048
  2. DEXAMETHASONE [Concomitant]
     Active Substance: DEXAMETHASONE
  3. DIVALPROEX SODIUM [Concomitant]
     Active Substance: DIVALPROEX SODIUM
  4. VENLAFAXINE [Concomitant]
     Active Substance: VENLAFAXINE HYDROCHLORIDE
  5. FAMOTIDINE [Concomitant]
     Active Substance: FAMOTIDINE

REACTIONS (1)
  - Hospice care [None]
